FAERS Safety Report 12888494 (Version 1)
Quarter: 2016Q4

REPORT INFORMATION
  Report Type: Spontaneous
  Country: CN (occurrence: CN)
  Receive Date: 20161027
  Receipt Date: 20161027
  Transmission Date: 20170207
  Serious: Yes (Hospitalization)
  Sender: FDA-Public Use
  Company Number: CN-B.I. PHARMACEUTICALS,INC./RIDGEFIELD-2016-BI-070245

PATIENT
  Age: 59 Year
  Sex: Male
  Weight: 67 kg

DRUGS (7)
  1. ESOMEPRAZOLE SODIUM. [Suspect]
     Active Substance: ESOMEPRAZOLE SODIUM
     Indication: CHRONIC GASTRITIS
     Route: 042
     Dates: start: 20160812, end: 20160818
  2. TAMSULOSINA [Suspect]
     Active Substance: TAMSULOSIN HYDROCHLORIDE
     Indication: BENIGN PROSTATIC HYPERPLASIA
     Route: 048
     Dates: start: 20160806, end: 20160825
  3. POLYENE PHOSPHATIDYLCHOLINE [Concomitant]
     Active Substance: PHOSPHOLIPID
     Indication: PRODUCT USED FOR UNKNOWN INDICATION
     Route: 065
     Dates: start: 20160812, end: 20160826
  4. GLUCOSE [Concomitant]
     Active Substance: DEXTROSE
     Indication: PRODUCT USED FOR UNKNOWN INDICATION
     Route: 065
  5. ADEMETIONINE 1,4-BUTANEDISULFONATE [Concomitant]
     Indication: PRODUCT USED FOR UNKNOWN INDICATION
     Route: 065
     Dates: start: 20160812, end: 20160820
  6. GLUTATHIONE [Concomitant]
     Active Substance: GLUTATHIONE
     Indication: PRODUCT USED FOR UNKNOWN INDICATION
     Route: 065
     Dates: start: 20160806, end: 20160811
  7. SODIUM CHLORIDE. [Concomitant]
     Active Substance: SODIUM CHLORIDE
     Indication: PRODUCT USED FOR UNKNOWN INDICATION
     Route: 065
     Dates: start: 20160806, end: 20160818

REACTIONS (1)
  - Hepatic function abnormal [Recovering/Resolving]

NARRATIVE: CASE EVENT DATE: 20160817
